FAERS Safety Report 5036310-7 (Version None)
Quarter: 2006Q2

REPORT INFORMATION
  Report Type: 
  Country: None (occurrence: None)
  Receive Date: 20060601
  Receipt Date: 20060427
  Transmission Date: 20061013
  Serious: No
  Sender: FDA-Public Use
  Company Number: US200604004724

PATIENT
  Age: 29 Year
  Sex: Female

DRUGS (7)
  1. CYMBALTA [Suspect]
     Indication: COMPLEX REGIONAL PAIN SYNDROME
     Dosage: 30 MG, DAILY (1/D),
     Dates: start: 20060401
  2. AVINZA/USA/(MORPHINE SULFATE) [Concomitant]
  3. NEURONTIN [Concomitant]
  4. AMBIEN [Concomitant]
  5. ZYRTEC [Concomitant]
  6. FLONASE [Concomitant]
  7. PATANOL [Concomitant]

REACTIONS (3)
  - HEADACHE [None]
  - NAUSEA [None]
  - PAROSMIA [None]
